FAERS Safety Report 12888130 (Version 1)
Quarter: 2016Q4

REPORT INFORMATION
  Report Type: Spontaneous
  Country: US (occurrence: US)
  Receive Date: 20161027
  Receipt Date: 20161027
  Transmission Date: 20170207
  Serious: Yes (Hospitalization)
  Sender: FDA-Public Use
  Company Number: US-BAUSCH-BL-2016-026056

PATIENT
  Age: 3 Year
  Sex: Female
  Weight: 15.44 kg

DRUGS (1)
  1. XENAZINE [Suspect]
     Active Substance: TETRABENAZINE
     Indication: PRODUCT USED FOR UNKNOWN INDICATION
     Dosage: 12.5 MG ONE AND A QUARTER TABLETS
     Route: 048
     Dates: start: 201502

REACTIONS (5)
  - Drug administration error [Unknown]
  - Trismus [Unknown]
  - Bruxism [Unknown]
  - Hyporesponsive to stimuli [Unknown]
  - Sedation [Unknown]

NARRATIVE: CASE EVENT DATE: 201502
